FAERS Safety Report 18233561 (Version 1)
Quarter: 2020Q3

REPORT INFORMATION
  Report Type: Spontaneous
  Country: JP (occurrence: JP)
  Receive Date: 20200904
  Receipt Date: 20200904
  Transmission Date: 20201103
  Serious: Yes (Other)
  Sender: FDA-Public Use
  Company Number: JP-ASTRAZENECA-2020SF11583

PATIENT
  Sex: Male

DRUGS (4)
  1. CHINESE MEDICINES [Concomitant]
     Dosage: DOSE UNKNOWN
     Route: 048
  2. LOKELMA [Suspect]
     Active Substance: SODIUM ZIRCONIUM CYCLOSILICATE
     Dosage: DOSE UNKNOWN
     Route: 048
  3. KREMEZIN [Concomitant]
     Active Substance: ACTIVATED CHARCOAL
     Dosage: DOSE UNKNOWN
     Route: 048
  4. ARGAMATE [Concomitant]
     Active Substance: CALCIUM POLYSTYRENE SULFONATE
     Dosage: DOSE UNKNOWN
     Route: 048

REACTIONS (4)
  - Vascular injury [Unknown]
  - Underdose [Unknown]
  - Haematemesis [Unknown]
  - Cough [Unknown]
